FAERS Safety Report 7959488-1 (Version None)
Quarter: 2011Q4

REPORT INFORMATION
  Report Type: 
  Country: None (occurrence: None)
  Receive Date: 20111206
  Receipt Date: 20111130
  Transmission Date: 20120403
  Serious: Yes (Hospitalization, Disabling, Other)
  Sender: FDA-Public Use
  Company Number: JP-PFIZER INC-2011265050

PATIENT
  Age: 79 Year
  Sex: Female
  Weight: 42.1 kg

DRUGS (19)
  1. ZOSYN [Suspect]
     Indication: INFECTION
     Dosage: 4.5 G, 3X/DAY
     Route: 041
     Dates: start: 20110908, end: 20111013
  2. GASCON [Concomitant]
     Dosage: UNK
     Route: 048
  3. COSPANON [Concomitant]
     Dosage: UNK
  4. MAGNESIUM SULFATE [Concomitant]
     Dosage: UNK
  5. LYRICA [Suspect]
     Indication: NEUROPATHY PERIPHERAL
     Dosage: 25 MG, 1X/DAY
     Route: 048
     Dates: start: 20110707, end: 20110713
  6. PRAVASTATIN SODIUM [Concomitant]
     Dosage: UNK
     Route: 048
  7. RABEPRAZOLE SODIUM [Concomitant]
     Dosage: UNK
  8. LYRICA [Suspect]
     Dosage: 75 MG, 1X/DAY
     Route: 048
     Dates: start: 20110714, end: 20110727
  9. ZOSYN [Suspect]
     Indication: LIVER ABSCESS
  10. METHYCOBAL [Concomitant]
     Dosage: UNK
  11. URSO 250 [Concomitant]
     Dosage: UNK
  12. MIYA BM [Concomitant]
     Dosage: UNK
  13. GANATON [Concomitant]
     Dosage: UNK
     Route: 048
  14. SUMILU STICK [Concomitant]
     Dosage: UNK
  15. CONIEL [Concomitant]
     Dosage: UNK
     Route: 048
  16. DEPAS [Concomitant]
     Dosage: UNK
     Route: 048
  17. LYRICA [Suspect]
     Dosage: 75 MG, 1X/DAY
     Route: 048
     Dates: start: 20111013, end: 20111016
  18. TARIVID OPHTHALMIC [Concomitant]
     Dosage: UNK
  19. LYRICA [Suspect]
     Dosage: 75 MG, 2X/DAY
     Route: 048
     Dates: start: 20110728, end: 20110831

REACTIONS (1)
  - TUBULOINTERSTITIAL NEPHRITIS [None]
